FAERS Safety Report 5423352-2 (Version None)
Quarter: 2007Q3

REPORT INFORMATION
  Report Type: 
  Country: None (occurrence: None)
  Receive Date: 20070823
  Receipt Date: 20070528
  Transmission Date: 20080115
  Serious: Yes (Hospitalization)
  Sender: FDA-Public Use
  Company Number: FR-RB-007716-07

PATIENT
  Age: 34 Year
  Sex: Male

DRUGS (1)
  1. SUBUTEX [Suspect]
     Dosage: HAD RECEIVED BUPRENORPHINE 2MG / DAY
     Route: 013
     Dates: start: 20000101

REACTIONS (5)
  - INCORRECT ROUTE OF DRUG ADMINISTRATION [None]
  - INTENTIONAL DRUG MISUSE [None]
  - LIVEDO RETICULARIS [None]
  - SKIN NECROSIS [None]
  - SKIN ULCER [None]
